FAERS Safety Report 24215631 (Version 1)
Quarter: 2024Q3

REPORT INFORMATION
  Report Type: Spontaneous
  Country: US (occurrence: US)
  Receive Date: 20240816
  Receipt Date: 20240816
  Transmission Date: 20241016
  Serious: Yes (Hospitalization)
  Sender: AMGEN
  Company Number: US-AMGEN-USASP2024158440

PATIENT
  Age: 6 Year
  Sex: Female

DRUGS (3)
  1. RAVICTI [Suspect]
     Active Substance: GLYCEROL PHENYLBUTYRATE
     Indication: Ornithine transcarbamoylase deficiency
     Dosage: 3 ML IN THE MORNING, 2.5 ML IN THE AFTERNOON AND 3 ML IN THE
     Route: 065
  2. VITAMINS [Concomitant]
     Active Substance: VITAMINS
     Dosage: UNK
  3. CITRULLINE 200 [Concomitant]
     Dosage: 200 MILLIGRAM PER 4 G POWD PACK

REACTIONS (1)
  - Hospitalisation [Unknown]

NARRATIVE: CASE EVENT DATE: 20240701
